FAERS Safety Report 13124856 (Version 2)
Quarter: 2017Q2

REPORT INFORMATION
  Report Type: Report from Study
  Country: IT (occurrence: IT)
  Receive Date: 20170118
  Receipt Date: 20170426
  Transmission Date: 20170830
  Serious: Yes (Hospitalization)
  Sender: FDA-Public Use
  Company Number: IT-009507513-1701ITA004515

PATIENT
  Age: 69 Year
  Sex: Female

DRUGS (11)
  1. LANSOPRAZOLE. [Concomitant]
     Active Substance: LANSOPRAZOLE
     Dosage: 30 MG, UNK
     Route: 048
  2. TIKLID [Concomitant]
     Active Substance: TICLOPIDINE HYDROCHLORIDE
     Indication: SUPRAVENTRICULAR EXTRASYSTOLES
     Dosage: 300 MG, UNK
     Route: 048
  3. OLPREZIDE [Concomitant]
     Active Substance: HYDROCHLOROTHIAZIDE\OLMESARTAN MEDOXOMIL
     Indication: HYPERTENSION
     Dosage: 20 MG, UNK
     Route: 048
  4. TIROSINT [Concomitant]
     Active Substance: LEVOTHYROXINE SODIUM
     Indication: HYPOTHYROIDISM
     Dosage: 50 MG, UNK
     Route: 048
  5. URBASON [Suspect]
     Active Substance: METHYLPREDNISOLONE
     Indication: MYELOPROLIFERATIVE NEOPLASM
     Dosage: UNK
  6. EUTIROX [Concomitant]
     Active Substance: LEVOTHYROXINE SODIUM
     Indication: HYPOTHYROIDISM
     Dosage: 75 MG, UNK
     Route: 048
  7. ONCOCARBIDE 500 MG [Suspect]
     Active Substance: HYDROXYUREA
     Indication: MYELOPROLIFERATIVE NEOPLASM
     Dosage: UNK
  8. FOSAVANCE [Suspect]
     Active Substance: ALENDRONATE SODIUM\CHOLECALCIFEROL
     Indication: OSTEOPOROSIS
     Dosage: 70 MG, WEEKLY
     Route: 048
  9. DIBASE [Concomitant]
     Active Substance: CHOLECALCIFEROL
     Indication: OSTEOPOROSIS
     Dosage: 25000 IU, UNK
     Route: 048
  10. CARDICOR [Concomitant]
     Active Substance: BISOPROLOL
     Indication: SUPRAVENTRICULAR EXTRASYSTOLES
     Dosage: 1.25 MG, UNK
     Route: 048
  11. ZYLORIC [Concomitant]
     Active Substance: ALLOPURINOL
     Indication: HYPERURICAEMIA
     Dosage: 300 MG, UNK
     Route: 048

REACTIONS (1)
  - Osteitis [Recovering/Resolving]

NARRATIVE: CASE EVENT DATE: 20160330
